FAERS Safety Report 10052553 (Version 3)
Quarter: 2014Q4

REPORT INFORMATION
  Report Type: Spontaneous
  Country: US (occurrence: US)
  Receive Date: 20140402
  Receipt Date: 20141014
  Transmission Date: 20150528
  Serious: Yes (Other)
  Sender: FDA-Public Use
  Company Number: US-BAYER-2014-048104

PATIENT
  Age: 23 Year
  Sex: Female
  Weight: 49 kg

DRUGS (2)
  1. ROBINUL [Concomitant]
     Active Substance: GLYCOPYRROLATE
  2. MIRENA [Suspect]
     Active Substance: LEVONORGESTREL
     Indication: CONTRACEPTION
     Dosage: 20 MCG/24HR, CONT
     Route: 015
     Dates: start: 20090924, end: 20110610

REACTIONS (8)
  - Injury [None]
  - Abortion spontaneous [None]
  - Device dislocation [None]
  - Fear of disease [None]
  - Emotional distress [None]
  - Uterine perforation [None]
  - Pain [None]
  - Device issue [None]

NARRATIVE: CASE EVENT DATE: 2011
